FAERS Safety Report 5213644-4 (Version None)
Quarter: 2007Q1

REPORT INFORMATION
  Report Type: 
  Country: None (occurrence: None)
  Receive Date: 20070119
  Receipt Date: 20070110
  Transmission Date: 20070707
  Serious: Yes (Other)
  Sender: FDA-Public Use
  Company Number: GB-PFIZER INC-2007004061

PATIENT
  Age: 50 Year
  Sex: Male

DRUGS (5)
  1. LIPITOR [Suspect]
     Route: 048
  2. FOLIC ACID [Suspect]
  3. FUROSEMIDE [Suspect]
  4. INSULIN [Suspect]
  5. COAPROVEL [Suspect]
     Route: 048

REACTIONS (1)
  - PROTEINURIA [None]
